FAERS Safety Report 4363618-0 (Version None)
Quarter: 2004Q2

REPORT INFORMATION
  Report Type: 
  Country: None (occurrence: None)
  Receive Date: 20040524
  Receipt Date: 20040524
  Transmission Date: 20050107
  Serious: No
  Sender: FDA-Public Use
  Company Number: None

PATIENT
  Age: 28 Year
  Sex: Female
  Weight: 77.1115 kg

DRUGS (2)
  1. LEXAPRO [Suspect]
     Indication: DEPRESSION
     Dosage: 10MG 1X DAY ORAL
     Route: 048
     Dates: start: 20031001, end: 20031201
  2. SYNTHROID [Concomitant]

REACTIONS (6)
  - ARTHRALGIA [None]
  - DRUG WITHDRAWAL SYNDROME [None]
  - HYPERSENSITIVITY [None]
  - PLANTAR FASCIITIS [None]
  - WEIGHT INCREASED [None]
  - WEIGHT LOSS POOR [None]
